FAERS Safety Report 9764516 (Version 4)
Quarter: 2014Q2

REPORT INFORMATION
  Report Type: Spontaneous
  Country: GB (occurrence: GB)
  Receive Date: 20131217
  Receipt Date: 20140627
  Transmission Date: 20141212
  Serious: Yes (Other)
  Sender: FDA-Public Use
  Company Number: GB-BEH-2013039397

PATIENT
  Age: 8 Year
  Sex: Male

DRUGS (3)
  1. IVIG [Suspect]
     Indication: HAEMOLYSIS
     Dosage: 0.5 G/KG X 4 DAYS
     Route: 042
  2. METHYLPREDNISOLONE [Concomitant]
     Indication: HAEMOLYSIS
     Route: 042
  3. METHYLPREDNISOLONE [Concomitant]
     Route: 042

REACTIONS (8)
  - Respiratory failure [Unknown]
  - ABO incompatibility [Recovered/Resolved]
  - Coombs direct test positive [Recovered/Resolved]
  - Anti-erythrocyte antibody positive [Recovered/Resolved]
  - Haemoglobin decreased [Recovered/Resolved]
  - Reticulocyte count decreased [Recovered/Resolved]
  - Blood lactate dehydrogenase increased [Recovered/Resolved]
  - Drug ineffective for unapproved indication [Recovered/Resolved]
